FAERS Safety Report 7599142-1 (Version None)
Quarter: 2011Q3

REPORT INFORMATION
  Report Type: 
  Country: None (occurrence: None)
  Receive Date: 20110711
  Receipt Date: 20110628
  Transmission Date: 20111222
  Serious: Yes (Other)
  Sender: FDA-Public Use
  Company Number: GB-BAYER-2011-058247

PATIENT
  Sex: Female

DRUGS (2)
  1. MIRENA [Suspect]
  2. MIRENA [Suspect]

REACTIONS (4)
  - DEVICE DIFFICULT TO USE [None]
  - HYPERVENTILATION [None]
  - ANXIETY [None]
  - SYNCOPE [None]
